FAERS Safety Report 12528731 (Version 1)
Quarter: 2016Q3

REPORT INFORMATION
  Report Type: Spontaneous
  Country: US (occurrence: US)
  Receive Date: 20160705
  Receipt Date: 20160705
  Transmission Date: 20161109
  Serious: No
  Sender: FDA-Public Use
  Company Number: US-CELGENEUS-USA-2016066071

PATIENT
  Age: 15 Year
  Sex: Male
  Weight: 63.11 kg

DRUGS (1)
  1. THALOMID [Suspect]
     Active Substance: THALIDOMIDE
     Indication: CROHN^S DISEASE
     Dosage: 50 MILLIGRAM
     Route: 048
     Dates: start: 20160111

REACTIONS (2)
  - Weight increased [Unknown]
  - Body height increased [Unknown]

NARRATIVE: CASE EVENT DATE: 20160303
